FAERS Safety Report 9240508 (Version 1)
Quarter: 2013Q1

REPORT INFORMATION
  Report Type: Spontaneous
  Country: US (occurrence: None)
  Receive Date: 20121120
  Receipt Date: 20121120
  Transmission Date: 20140127
  Serious: No
  Sender: FDA-Public Use
  Company Number: 1000039234

PATIENT
  Age: 40 Year
  Sex: Female

DRUGS (3)
  1. VIIBRYD [Suspect]
     Indication: DEPRESSION
     Dosage: 10MG (10MG, 1 IN 1 D), ORAL
     Route: 048
     Dates: start: 20120702, end: 20120708
  2. VIIBRYD [Suspect]
     Indication: DEPRESSION
     Dosage: 40MG (40MG, 1 IN 1 D), ORAL
     Route: 048
     Dates: start: 20120716, end: 20120719
  3. VIIBRYD [Concomitant]
     Indication: DEPRESSION
     Dosage: 20MG (20MG, 1 IN 1 D) ORAL
     Route: 048
     Dates: start: 20120720

REACTIONS (1)
  - Abnormal dreams [None]
